FAERS Safety Report 11186768 (Version 1)
Quarter: 2015Q2

REPORT INFORMATION
  Report Type: Other
  Country: IT (occurrence: IT)
  Receive Date: 20150613
  Receipt Date: 20150613
  Transmission Date: 20150821
  Serious: Yes (Life-Threatening)
  Sender: FDA-Public Use
  Company Number: IT-MYLANLABS-2015M1018920

PATIENT

DRUGS (1)
  1. CIPROFLOXACIN SOLUTION FOR INFUSION [Suspect]
     Active Substance: CIPROFLOXACIN
     Indication: PROPHYLAXIS
     Dosage: 200 MG, TOTAL
     Route: 041
     Dates: start: 20150512, end: 20150512

REACTIONS (4)
  - Oxygen saturation decreased [Recovered/Resolved]
  - Angina pectoris [Recovered/Resolved]
  - Anaphylactic shock [Recovered/Resolved]
  - Electrocardiogram ST segment depression [Recovered/Resolved]

NARRATIVE: CASE EVENT DATE: 20150512
